FAERS Safety Report 26052907 (Version 1)
Quarter: 2025Q4

REPORT INFORMATION
  Report Type: Report from Study
  Country: EU (occurrence: EU)
  Receive Date: 20251117
  Receipt Date: 20251117
  Transmission Date: 20260118
  Serious: Yes (Hospitalization)
  Sender: ABBVIE
  Company Number: EU-ABBVIE-6303689

PATIENT
  Age: 75 Year
  Sex: Male

DRUGS (2)
  1. FOSCARBIDOPA\FOSLEVODOPA [Suspect]
     Active Substance: FOSCARBIDOPA\FOSLEVODOPA
     Indication: Parkinson^s disease
     Dosage: CRN: 0.30 ML/H, CR: 0.37 ML/H, CRH: 0.39 ML/H, ED:0.15 ML, ?LAST ADMIN DATE: 2025
     Route: 058
     Dates: start: 20250507
  2. FOSCARBIDOPA\FOSLEVODOPA [Suspect]
     Active Substance: FOSCARBIDOPA\FOSLEVODOPA
     Dosage: CRN: 0.34 ML/H, CR: 0.39 ML/H, CRH: 0.41 ML/H, ED: 0.15 ML, ?FIRST ADMIN DATE: 2025
     Route: 058

REACTIONS (7)
  - Vascular occlusion [Unknown]
  - On and off phenomenon [Recovered/Resolved]
  - Infusion site warmth [Recovered/Resolved]
  - Infusion site erythema [Recovered/Resolved]
  - Infusion site inflammation [Unknown]
  - Infusion site pain [Recovered/Resolved]
  - Infusion site induration [Recovered/Resolved]

NARRATIVE: CASE EVENT DATE: 20250101
